FAERS Safety Report 19790357 (Version 1)
Quarter: 2021Q3

REPORT INFORMATION
  Report Type: Spontaneous
  Country: US (occurrence: US)
  Receive Date: 20210906
  Receipt Date: 20210906
  Transmission Date: 20211014
  Serious: Yes (Hospitalization, Other)
  Sender: FDA-Public Use
  Company Number: US-CIPLA LTD.-2021US06017

PATIENT

DRUGS (12)
  1. LACOSAMIDE. [Suspect]
     Active Substance: LACOSAMIDE
     Dosage: 150 MG, UNK
     Route: 065
  2. RISPERIDONE. [Suspect]
     Active Substance: RISPERIDONE
     Indication: PSYCHOTIC DISORDER
     Dosage: UNK
     Route: 065
  3. VALPROIC ACID. [Suspect]
     Active Substance: VALPROIC ACID
     Indication: STATUS EPILEPTICUS
     Dosage: UNK
     Route: 065
  4. LORAZEPAM. [Suspect]
     Active Substance: LORAZEPAM
     Indication: PSYCHOTIC DISORDER
     Dosage: UNK
     Route: 065
  5. TOPIRAMATE. [Suspect]
     Active Substance: TOPIRAMATE
     Indication: STATUS EPILEPTICUS
     Dosage: UNK
     Route: 065
  6. TOPIRAMATE. [Suspect]
     Active Substance: TOPIRAMATE
     Dosage: 200 MG, UNK
     Route: 065
  7. RISPERIDONE. [Suspect]
     Active Substance: RISPERIDONE
     Dosage: UNK, DOSE INCREASED
     Route: 065
  8. HALOPERIDOL. [Suspect]
     Active Substance: HALOPERIDOL
     Indication: STATUS EPILEPTICUS
     Dosage: UNK
     Route: 065
  9. LURASIDONE [Suspect]
     Active Substance: LURASIDONE
     Indication: PSYCHOTIC DISORDER
     Dosage: UNK
     Route: 065
  10. LAMOTRIGINE. [Suspect]
     Active Substance: LAMOTRIGINE
     Indication: SEIZURE
     Dosage: UNK
     Route: 065
  11. LAMOTRIGINE. [Suspect]
     Active Substance: LAMOTRIGINE
     Dosage: 200 MG, UNK
     Route: 065
  12. LACOSAMIDE. [Suspect]
     Active Substance: LACOSAMIDE
     Indication: STATUS EPILEPTICUS
     Dosage: UNK
     Route: 065

REACTIONS (4)
  - Psychotic disorder [Recovering/Resolving]
  - Anxiety [Recovering/Resolving]
  - Exposure during pregnancy [Unknown]
  - Treatment noncompliance [Unknown]
